FAERS Safety Report 9644853 (Version 1)
Quarter: 2013Q4

REPORT INFORMATION
  Report Type: Spontaneous
  Country: US (occurrence: US)
  Receive Date: 20131025
  Receipt Date: 20131025
  Transmission Date: 20140711
  Serious: No
  Sender: FDA-Public Use
  Company Number: US-PFIZER INC-2013302169

PATIENT
  Age: 48 Year
  Sex: Female
  Weight: 65.76 kg

DRUGS (2)
  1. PRISTIQ [Suspect]
     Indication: MENOPAUSE
     Dosage: 50 MG, 1X/DAY
     Route: 048
     Dates: start: 20130613, end: 201308
  2. PRISTIQ [Suspect]
     Dosage: 50 MG, 2X/DAY
     Route: 048
     Dates: start: 201308

REACTIONS (2)
  - Off label use [Unknown]
  - Drug ineffective for unapproved indication [Unknown]
